FAERS Safety Report 23074332 (Version 1)
Quarter: 2023Q4

REPORT INFORMATION
  Report Type: Spontaneous
  Country: None (occurrence: GB)
  Receive Date: 20231017
  Receipt Date: 20231017
  Transmission Date: 20240109
  Serious: Yes (Other)
  Sender: FDA-Public Use
  Company Number: GB-Ascend Therapeutics US, LLC-2147136

PATIENT
  Age: 62 Year
  Sex: Female
  Weight: 56 kg

DRUGS (5)
  1. ESTROGEL [Suspect]
     Active Substance: ESTRADIOL
     Indication: Menopause
     Route: 065
     Dates: start: 20230909, end: 2023
  2. ESTRADIOL [Suspect]
     Active Substance: ESTRADIOL
     Route: 065
     Dates: start: 20230909, end: 2023
  3. ESTRADIOL [Suspect]
     Active Substance: ESTRADIOL
     Route: 065
     Dates: start: 2023
  4. ovestin(ESTRIOL) [Concomitant]
     Route: 065
  5. TESTIM [Concomitant]
     Active Substance: TESTOSTERONE
     Route: 065

REACTIONS (5)
  - Palpitations [Recovered/Resolved]
  - Hot flush [Recovered/Resolved]
  - Feeling hot [Recovered/Resolved]
  - Menopausal symptoms [Recovered/Resolved]
  - Anxiety [Recovered/Resolved]

NARRATIVE: CASE EVENT DATE: 20230918
